FAERS Safety Report 20229334 (Version 1)
Quarter: 2021Q4

REPORT INFORMATION
  Report Type: Spontaneous
  Country: DE (occurrence: DE)
  Receive Date: 20211225
  Receipt Date: 20211225
  Transmission Date: 20220304
  Serious: Yes (Hospitalization)
  Sender: FDA-Public Use
  Company Number: DE-ADRED-07006-01

PATIENT
  Age: 76 Year
  Sex: Female

DRUGS (4)
  1. TELMISARTAN [Interacting]
     Active Substance: TELMISARTAN
     Dosage: 80 MILLIGRAM DAILY; 80 MG, 1-0-0-0,
     Route: 048
  2. SPIRONOLACTONE [Interacting]
     Active Substance: SPIRONOLACTONE
     Dosage: .5 DOSAGE FORMS DAILY; 50 MG, 0.5-0-0-0,
     Route: 048
  3. ELIQUIS [Suspect]
     Active Substance: APIXABAN
     Dosage: 10 MILLIGRAM DAILY; 5 MG, 1-0-1-0,
     Route: 048
  4. PANTOPRAZOLE SODIUM [Concomitant]
     Active Substance: PANTOPRAZOLE SODIUM
     Dosage: 1 DOSAGE FORMS DAILY; 20 MG, 1-0-0-0,
     Route: 048

REACTIONS (6)
  - Fall [Unknown]
  - Pain [Unknown]
  - Therapeutic drug monitoring analysis not performed [Unknown]
  - Product monitoring error [Unknown]
  - Labelled drug-drug interaction medication error [Unknown]
  - Haematoma [Unknown]
